FAERS Safety Report 8500360-6 (Version None)
Quarter: 2012Q3

REPORT INFORMATION
  Report Type: 
  Country: None (occurrence: None)
  Receive Date: 20120705
  Receipt Date: 20120705
  Transmission Date: 20120928
  Serious: Yes (Death, Life-Threatening, Hospitalization)
  Sender: FDA-Public Use
  Company Number: None

PATIENT
  Sex: Male
  Weight: 131.5431 kg

DRUGS (1)
  1. BCG - SPECIFICS UNKNOWN TO ME [Suspect]
     Indication: BLADDER CANCER
     Dosage: UNKNOWN TO ME, WEEKLY, INTRAVENOUS
     Route: 042
     Dates: start: 20120206, end: 20120507

REACTIONS (9)
  - BODY TEMPERATURE FLUCTUATION [None]
  - PRODUCT QUALITY ISSUE [None]
  - NAUSEA [None]
  - INTRACARDIAC THROMBUS [None]
  - BODY TEMPERATURE INCREASED [None]
  - THROMBOSIS [None]
  - DYSPNOEA [None]
  - BURNING SENSATION [None]
  - PULMONARY THROMBOSIS [None]
